FAERS Safety Report 17564788 (Version 1)
Quarter: 2020Q1

REPORT INFORMATION
  Report Type: Spontaneous
  Country: US (occurrence: US)
  Receive Date: 20200320
  Receipt Date: 20200320
  Transmission Date: 20200409
  Serious: No
  Sender: FDA-Public Use
  Company Number: US-ASTRAZENECA-2020SE36779

PATIENT
  Age: 56 Year
  Sex: Male

DRUGS (1)
  1. ZOMIG [Suspect]
     Active Substance: ZOLMITRIPTAN
     Indication: MIGRAINE
     Dosage: USE 1 SPRAY IN 1 NOSTRIL AT ONSET OF MIGRAINE. MAY REPEAT IN 2 HOURS IF NEEDED.
     Route: 045

REACTIONS (2)
  - Product dose omission [Unknown]
  - Migraine [Unknown]
